FAERS Safety Report 5267243-9 (Version None)
Quarter: 2007Q1

REPORT INFORMATION
  Report Type: 
  Country: None (occurrence: None)
  Receive Date: 20070316
  Receipt Date: 20070306
  Transmission Date: 20070707
  Serious: Yes (Other)
  Sender: FDA-Public Use
  Company Number: TR-ABBOTT-07P-163-0361253-00

PATIENT
  Age: 30 Year
  Sex: Female

DRUGS (2)
  1. CLARITHROMYCIN [Suspect]
     Indication: SINUSITIS
  2. CARBAMAZEPINE [Suspect]
     Indication: EPILEPSY

REACTIONS (2)
  - DRUG INTERACTION [None]
  - HYPONATRAEMIA [None]
